FAERS Safety Report 10632542 (Version 1)
Quarter: 2014Q4

REPORT INFORMATION
  Report Type: Spontaneous
  Country: US (occurrence: US)
  Receive Date: 20141205
  Receipt Date: 20141205
  Transmission Date: 20150529
  Serious: No
  Sender: FDA-Public Use
  Company Number: US-BRISTOL-MYERS SQUIBB COMPANY-21467618

PATIENT
  Sex: Female

DRUGS (1)
  1. ELIQUIS [Suspect]
     Active Substance: APIXABAN
     Dosage: NO OF DOSE:2

REACTIONS (4)
  - Malaise [Recovering/Resolving]
  - Dyspnoea [Recovering/Resolving]
  - Hypersensitivity [Recovering/Resolving]
  - Gingival swelling [Recovering/Resolving]
